FAERS Safety Report 4932593-X (Version None)
Quarter: 2006Q1

REPORT INFORMATION
  Report Type: 
  Country: None (occurrence: None)
  Receive Date: 20060301
  Receipt Date: 20050922
  Transmission Date: 20060701
  Serious: Yes (Hospitalization)
  Sender: FDA-Public Use
  Company Number: 863#3#2005-00013

PATIENT
  Age: 73 Year
  Sex: Female

DRUGS (5)
  1. IDROLAX (MACROGOL) [Suspect]
     Indication: CONSTIPATION
     Route: 048
     Dates: start: 20040701
  2. DIOSMINE, HESPERIDINE (DISOMIN, HESPERIDIN) [Suspect]
     Route: 048
     Dates: start: 20000701
  3. LEVOTHYROXINE SODIUM [Suspect]
     Route: 048
     Dates: start: 19971215
  4. ACETAMINOPHEN [Suspect]
     Route: 048
     Dates: end: 20050629
  5. ARTHRO DRAINOL [Suspect]
     Route: 048
     Dates: start: 19950701

REACTIONS (2)
  - ERYTHEMA ANNULARE [None]
  - PRURITUS [None]
